FAERS Safety Report 8805034 (Version 2)
Quarter: 2012Q4

REPORT INFORMATION
  Report Type: 
  Country: BR (occurrence: BR)
  Receive Date: 20120924
  Receipt Date: 20121001
  Transmission Date: 20130627
  Serious: Yes (Hospitalization, Other)
  Sender: FDA-Public Use
  Company Number: PHHY2012BR080535

PATIENT
  Age: 26 Year
  Sex: Female
  Weight: 80 kg

DRUGS (16)
  1. BUDESONIDE, FORMOTEROL FUMARATE [Suspect]
     Dosage: UNK UKN, UNK
     Dates: start: 1996
  2. BUDESONIDE, FORMOTEROL FUMARATE [Suspect]
     Dosage: UNK UKN, BID
  3. CORTICOSTE., MODERAT.POTENT, COMB W/ANTIBIO. [Concomitant]
     Dosage: 40 mg, QD
     Route: 048
     Dates: start: 2005
  4. BECLOMETASONE [Concomitant]
     Dosage: 1000 ug, QD
     Route: 045
  5. BAMIFYLLINE [Concomitant]
     Dosage: 600 mg, QD
  6. SALBUTAMOL [Concomitant]
     Dosage: UNK UKN, UNK
  7. HYDROCHLOROTHIAZIDE [Concomitant]
     Dosage: UNK UKN, UNK
  8. ALENDRONATE SODIUM [Concomitant]
     Dosage: UNK UKN, UNK
  9. NIFEDIPINE [Concomitant]
     Dosage: UNK UKN, UNK
  10. OMEPRAZOLE [Concomitant]
     Dosage: UNK UKN, UNK
  11. TAPAZOL [Concomitant]
     Dosage: UNK UKN, UNK
  12. BETA-2 [Concomitant]
     Dosage: 4 to 6 times a day
  13. MONTELUKAST [Concomitant]
     Dosage: UNK UKN, UNK
  14. FLUTICASONE [Concomitant]
     Dosage: UNK UKN, UNK
  15. SALMETEROL [Concomitant]
     Dosage: UNK UKN, UNK
  16. ANTIHISTAMINES [Concomitant]
     Dosage: UNK UKN, UNK

REACTIONS (4)
  - Obstructive airways disorder [Recovering/Resolving]
  - Forced expiratory volume decreased [Recovering/Resolving]
  - Cushing^s syndrome [Recovered/Resolved]
  - Middle insomnia [Recovering/Resolving]
